FAERS Safety Report 5847702-8 (Version None)
Quarter: 2008Q3

REPORT INFORMATION
  Report Type: 
  Country: None (occurrence: None)
  Receive Date: 20080818
  Receipt Date: 20080812
  Transmission Date: 20090109
  Serious: Yes (Death)
  Sender: FDA-Public Use
  Company Number: HU-NOVOPROD-278437

PATIENT
  Age: 34 Year
  Sex: Male
  Weight: 56 kg

DRUGS (18)
  1. NOVOSEVEN [Suspect]
     Dosage: 57.6 MG, QD
     Route: 042
     Dates: start: 20080730, end: 20080731
  2. NOVOSEVEN [Suspect]
     Dosage: 43.2 MG, QD
     Route: 042
     Dates: start: 20080801, end: 20080801
  3. NOVOSEVEN [Suspect]
     Dosage: 28.8 MG, QD
     Route: 042
     Dates: start: 20080802, end: 20080804
  4. NOVOSEVEN [Suspect]
     Dosage: 7.2 MG, QD
     Route: 042
     Dates: start: 20080805, end: 20080805
  5. EXACYL [Concomitant]
     Dosage: 3 G, QD
     Route: 042
     Dates: start: 20080730, end: 20080805
  6. ZINACEF                            /00454601/ [Concomitant]
     Dosage: 1.5 G, QD
     Route: 042
     Dates: start: 20080730, end: 20080801
  7. KLION                              /00012501/ [Concomitant]
     Dosage: 1.5 G, QD
     Route: 042
     Dates: start: 20080730, end: 20080801
  8. TIENAM [Concomitant]
     Dosage: 2 G, QD
     Route: 042
     Dates: start: 20080730, end: 20080805
  9. ENOXAPARIN SODIUM [Concomitant]
     Dosage: .4 G, QD
     Route: 042
     Dates: start: 20080730, end: 20080805
  10. TRAMADOL HCL [Concomitant]
     Dosage: 300 MG, QD
     Route: 042
     Dates: start: 20080730, end: 20080801
  11. QUAMATEL [Concomitant]
     Dosage: 40 MG, QD
     Dates: start: 20080730, end: 20080801
  12. CERUCAL [Concomitant]
     Dosage: 10 MG, QD
     Route: 042
     Dates: start: 20080730, end: 20080730
  13. FUROSEMID                          /00032601/ [Concomitant]
     Dosage: 10 MG, QD
     Route: 042
     Dates: start: 20080730, end: 20080730
  14. RED BLOOD CELLS [Concomitant]
     Dosage: 11 U, QD
     Route: 042
     Dates: start: 20080730, end: 20080730
  15. RED BLOOD CELLS [Concomitant]
     Dosage: 3 U, QD
     Route: 042
     Dates: start: 20080803, end: 20080803
  16. FRESH FROZEN PLASMA [Concomitant]
     Dosage: 4 U, QD
     Route: 042
     Dates: start: 20080730, end: 20080730
  17. FRESH FROZEN PLASMA [Concomitant]
     Dosage: 2 U, QD
     Route: 042
     Dates: start: 20080803, end: 20080803
  18. FEIBA [Concomitant]
     Dosage: 11000 U, QD
     Dates: start: 20080729, end: 20080729

REACTIONS (1)
  - MULTI-ORGAN FAILURE [None]
